FAERS Safety Report 15366788 (Version 1)
Quarter: 2018Q3

REPORT INFORMATION
  Report Type: Spontaneous
  Country: US (occurrence: US)
  Receive Date: 20180902
  Receipt Date: 20180902
  Transmission Date: 20181010
  Serious: Yes (Other)
  Sender: FDA-Public Use
  Company Number: None

PATIENT
  Age: 64 Year
  Sex: Female
  Weight: 82.35 kg

DRUGS (1)
  1. AUBAGIO [Suspect]
     Active Substance: TERIFLUNOMIDE
     Indication: MULTIPLE SCLEROSIS
     Route: 048
     Dates: start: 20161001, end: 20180902

REACTIONS (9)
  - Pneumonia bacterial [None]
  - Bronchitis viral [None]
  - Bronchitis [None]
  - Bronchitis bacterial [None]
  - Spinal cord neoplasm [None]
  - Influenza [None]
  - Bronchial hyperreactivity [None]
  - Asthma [None]
  - Malaise [None]

NARRATIVE: CASE EVENT DATE: 20180619
